FAERS Safety Report 6115442-6 (Version None)
Quarter: 2009Q1

REPORT INFORMATION
  Report Type: 
  Country: None (occurrence: None)
  Receive Date: 20090313
  Receipt Date: 20090309
  Transmission Date: 20090719
  Serious: Yes (Life-Threatening, Hospitalization)
  Sender: FDA-Public Use
  Company Number: DE-AVENTIS-200910680DE

PATIENT
  Age: 77 Year
  Sex: Female
  Weight: 95 kg

DRUGS (9)
  1. GLIBENCLAMIDE [Suspect]
     Route: 048
     Dates: start: 20000101, end: 20080727
  2. LISINOPRIL [Suspect]
     Route: 048
     Dates: start: 20030101, end: 20080727
  3. METOPROLOL TARTRATE [Suspect]
     Route: 048
     Dates: start: 19990101
  4. METFORMIN HCL [Suspect]
     Route: 048
     Dates: start: 19950101
  5. FURORESE                           /00032601/ [Suspect]
     Route: 048
     Dates: start: 20020101, end: 20080808
  6. ASPIRIN [Concomitant]
  7. PANTOZOL                           /01263202/ [Concomitant]
     Route: 048
     Dates: start: 20060101
  8. SIMVASTATIN [Concomitant]
     Route: 048
     Dates: start: 20020101
  9. XIPAMIDE [Concomitant]
     Dosage: DOSE: 20 MG, ORAL 2 IN DAY
     Route: 048
     Dates: start: 20000101

REACTIONS (4)
  - CONFUSIONAL STATE [None]
  - DRUG INTERACTION [None]
  - HYPOGLYCAEMIA [None]
  - RENAL FAILURE ACUTE [None]
